FAERS Safety Report 4457853-0 (Version None)
Quarter: 2004Q3

REPORT INFORMATION
  Report Type: 
  Country: None (occurrence: None)
  Receive Date: 20040924
  Receipt Date: 20040913
  Transmission Date: 20050211
  Serious: Yes (Life-Threatening)
  Sender: FDA-Public Use
  Company Number: GB-JNJFOC-20040903959

PATIENT
  Age: 29 Year
  Sex: Male
  Weight: 74 kg

DRUGS (5)
  1. REMICADE [Suspect]
     Indication: CROHN'S DISEASE
     Route: 042
  2. AZATHIOPRINE [Concomitant]
     Route: 049
     Dates: start: 20000101
  3. PREDNISOLONE [Concomitant]
     Indication: CROHN'S DISEASE
     Route: 049
  4. BALSALAZIDE [Concomitant]
     Indication: CROHN'S DISEASE
     Route: 049
  5. CALCICHEW D3 [Concomitant]
     Dosage: 1 BD.
     Route: 049

REACTIONS (2)
  - ANGIONEUROTIC OEDEMA [None]
  - PRURITUS [None]
